FAERS Safety Report 7214195-8 (Version None)
Quarter: 2011Q1

REPORT INFORMATION
  Report Type: 
  Country: None (occurrence: None)
  Receive Date: 20110107
  Receipt Date: 20110104
  Transmission Date: 20110831
  Serious: Yes (Hospitalization, Other)
  Sender: FDA-Public Use
  Company Number: US-AMGEN-USASP2011000498

PATIENT

DRUGS (6)
  1. CALCIUM [Concomitant]
  2. PROLIA [Suspect]
     Indication: OSTEOPOROSIS POSTMENOPAUSAL
     Dates: start: 20101202
  3. ESTRADIOL [Concomitant]
  4. LORATADINE [Concomitant]
  5. VITAMIN A [Concomitant]
  6. SIMVASTATIN [Concomitant]

REACTIONS (11)
  - HYPERTENSION [None]
  - ANXIETY [None]
  - BACK PAIN [None]
  - ASTHENIA [None]
  - NAUSEA [None]
  - BURNING SENSATION [None]
  - PALPITATIONS [None]
  - FLUSHING [None]
  - CHEST PAIN [None]
  - MYALGIA [None]
  - NERVOUSNESS [None]
